FAERS Safety Report 18894079 (Version 1)
Quarter: 2021Q1

REPORT INFORMATION
  Report Type: Spontaneous
  Country: US (occurrence: US)
  Receive Date: 20210215
  Receipt Date: 20210215
  Transmission Date: 20210420
  Serious: Yes (Other)
  Sender: FDA-Public Use
  Company Number: US-SA-2021SA038981

PATIENT
  Age: 55 Year
  Sex: Female

DRUGS (10)
  1. VITAMINS NOS [Concomitant]
     Active Substance: VITAMINS
  2. AUBAGIO [Suspect]
     Active Substance: TERIFLUNOMIDE
     Indication: MULTIPLE SCLEROSIS
     Dosage: 14 MG, QD
     Route: 048
     Dates: start: 2015
  3. MAGNESIUM [Concomitant]
     Active Substance: MAGNESIUM
  4. CYMBALTA [Concomitant]
     Active Substance: DULOXETINE HYDROCHLORIDE
  5. TYLENOL [Concomitant]
     Active Substance: ACETAMINOPHEN
  6. VITAMIN B12 [Concomitant]
     Active Substance: CYANOCOBALAMIN
  7. ATORVASTATIN [Concomitant]
     Active Substance: ATORVASTATIN
  8. ASPIRIN [ACETYLSALICYLIC ACID] [Concomitant]
     Active Substance: ASPIRIN
  9. CLONAZEPAM. [Concomitant]
     Active Substance: CLONAZEPAM
  10. PRILOSEC [Concomitant]
     Active Substance: OMEPRAZOLE MAGNESIUM

REACTIONS (7)
  - Bladder disorder [Unknown]
  - Cerebrovascular accident [Unknown]
  - Aphasia [Unknown]
  - Back pain [Unknown]
  - Confusional state [Unknown]
  - Muscle twitching [Unknown]
  - Headache [Unknown]

NARRATIVE: CASE EVENT DATE: 2018
